FAERS Safety Report 16232195 (Version 1)
Quarter: 2019Q2

REPORT INFORMATION
  Report Type: Spontaneous
  Country: US (occurrence: US)
  Receive Date: 20190424
  Receipt Date: 20190424
  Transmission Date: 20190711
  Serious: No
  Sender: FDA-Public Use
  Company Number: US-BIOGEN-2019BI00727995

PATIENT
  Age: 53 Year
  Sex: Male

DRUGS (7)
  1. VITAMIN D3 [Concomitant]
     Active Substance: CHOLECALCIFEROL
     Route: 065
  2. TECFIDERA [Suspect]
     Active Substance: DIMETHYL FUMARATE
     Indication: MULTIPLE SCLEROSIS
     Route: 065
     Dates: start: 20150127
  3. RANITIDINE. [Concomitant]
     Active Substance: RANITIDINE
     Route: 065
  4. LEXIPRO [Concomitant]
     Route: 065
  5. ASPIRIN 81 [Concomitant]
     Active Substance: ASPIRIN
     Route: 065
  6. METFORMIN [Concomitant]
     Active Substance: METFORMIN HYDROCHLORIDE
     Route: 065
  7. IBUPROFEN. [Concomitant]
     Active Substance: IBUPROFEN
     Route: 065

REACTIONS (1)
  - Influenza [Unknown]

NARRATIVE: CASE EVENT DATE: 20190417
